FAERS Safety Report 9507283 (Version 3)
Quarter: 2013Q3

REPORT INFORMATION
  Report Type: Spontaneous
  Country: DE (occurrence: DE)
  Receive Date: 20130909
  Receipt Date: 20130920
  Transmission Date: 20140515
  Serious: Yes (Death)
  Sender: FDA-Public Use
  Company Number: DE-OTSUKA-EU-2013-10206

PATIENT
  Age: 68 Year
  Sex: Female

DRUGS (17)
  1. SAMSCA [Suspect]
     Indication: HYPONATRAEMIA
     Dosage: 15 MG MILLIGRAM(S), DAILY DOSE
     Dates: start: 201303
  2. SAMSCA [Suspect]
     Dosage: UNK UNK, UNKNOWN
     Dates: start: 20130610, end: 20130618
  3. SAMSCA [Suspect]
     Dosage: 30 MG MILLIGRAM(S), DAILY DOSE
     Dates: start: 20130622, end: 20130626
  4. SAMSCA [Suspect]
     Dosage: 30 MG MILLIGRAM(S), DAILY DOSE
     Dates: start: 20130628
  5. SAMSCA [Suspect]
     Dosage: 30 MG MILLIGRAM(S), DAILY DOSE
     Dates: start: 20130701
  6. SAMSCA [Suspect]
     Dosage: 45 MG MILLIGRAM(S), DAILY DOSE
     Dates: start: 20130705
  7. SAMSCA [Suspect]
     Dosage: 45 MG MILLIGRAM(S), DAILY DOSE
     Dates: start: 20130707
  8. SAMSCA [Suspect]
     Dosage: 60 MG MILLIGRAM(S), DAILY DOSE
     Dates: start: 20130708
  9. AMLODIPINE [Concomitant]
     Indication: HYPERTENSION
     Dosage: 5 MG MILLIGRAM(S), DAILY DOSE
     Route: 048
  10. DEXAMETHASONE [Concomitant]
     Indication: APPETITE DISORDER
     Dosage: 4 MG MILLIGRAM(S), DAILY DOSE
     Route: 048
     Dates: start: 20130626
  11. ZOLPIDEM [Concomitant]
     Indication: INSOMNIA
     Dosage: 10 MG MILLIGRAM(S), DAILY DOSE
     Route: 048
     Dates: start: 20130626
  12. PANTOPRAZOLE [Concomitant]
     Indication: PROPHYLAXIS
     Dosage: 40 MG MILLIGRAM(S), DAILY DOSE
     Route: 048
     Dates: start: 20130626
  13. CHEMOTHERAPEUTICS [Concomitant]
     Dosage: UNK, UNKNOWN
     Dates: start: 201211, end: 201212
  14. CARBOPLATIN [Concomitant]
     Dosage: UNK, UNKNOWN
     Dates: start: 201301
  15. CARBOPLATIN [Concomitant]
     Dosage: 476 MG MILLIGRAM(S), SINGLE
     Dates: start: 201303
  16. ETOPOSIDE [Concomitant]
     Dosage: UNK, UNKNOWN
     Dates: start: 201301
  17. ETOPOSIDE [Concomitant]
     Dosage: 145 MG MILLIGRAM(S), UNKNOWN
     Dates: start: 201303

REACTIONS (2)
  - Death [Fatal]
  - Drug ineffective [Not Recovered/Not Resolved]
